FAERS Safety Report 19180461 (Version 1)
Quarter: 2021Q2

REPORT INFORMATION
  Report Type: Spontaneous
  Country: SE (occurrence: SE)
  Receive Date: 20210426
  Receipt Date: 20210426
  Transmission Date: 20210717
  Serious: Yes (Disabling)
  Sender: FDA-Public Use
  Company Number: SE-TEVA-2021-SE-1904806

PATIENT
  Age: 55 Year
  Sex: Female
  Weight: 58 kg

DRUGS (5)
  1. METRONIDAZOLE. [Suspect]
     Active Substance: METRONIDAZOLE
     Indication: VAGINAL INFECTION
     Dosage: 3 TABLETS / DAY
     Dates: start: 20210321, end: 20210324
  2. ENALAPRIL [Concomitant]
     Active Substance: ENALAPRIL
     Dates: start: 2012
  3. VITAMINER, MINERALER [Concomitant]
     Dates: start: 2019
  4. UBIDECARENONE. [Concomitant]
     Active Substance: UBIDECARENONE
     Dosage: 525 MG / DAY
     Dates: start: 2020
  5. PARACETAMOL [Concomitant]
     Active Substance: ACETAMINOPHEN
     Dates: start: 20210321, end: 20210325

REACTIONS (4)
  - Abdominal tenderness [Recovering/Resolving]
  - Herpes zoster [Recovering/Resolving]
  - Pyrexia [Recovering/Resolving]
  - Malaise [Recovering/Resolving]

NARRATIVE: CASE EVENT DATE: 202103
